FAERS Safety Report 13900957 (Version 2)
Quarter: 2020Q3

REPORT INFORMATION
  Report Type: Spontaneous
  Country: US (occurrence: US)
  Receive Date: 20170824
  Receipt Date: 20200830
  Transmission Date: 20201102
  Serious: Yes (Other)
  Sender: FDA-Public Use
  Company Number: US-ENDO PHARMACEUTICALS INC-2017-002814

PATIENT
  Sex: Male
  Weight: 113.4 kg

DRUGS (25)
  1. PREDNISONE. [Suspect]
     Active Substance: PREDNISONE
     Indication: PULMONARY SARCOIDOSIS
     Dosage: 2 DF, DAILY
     Route: 048
  2. MULTIVITAMIN                       /00097801/ [Concomitant]
     Active Substance: VITAMINS
     Indication: SUPPLEMENTATION THERAPY
     Dosage: 1 DF, DAILY
     Route: 048
     Dates: start: 2010
  3. VFEND [Concomitant]
     Active Substance: VORICONAZOLE
     Indication: PNEUMONIA
     Dosage: 2 DF, EVERY 12 HOURLY
     Route: 048
     Dates: start: 201702
  4. PREDNISONE. [Suspect]
     Active Substance: PREDNISONE
     Indication: PULMONARY SARCOIDOSIS
     Dosage: 2 DF, DAILY
     Route: 048
     Dates: start: 201408
  5. PLAQUENIL                          /00072602/ [Concomitant]
     Active Substance: HYDROXYCHLOROQUINE DIPHOSPHATE
     Indication: PULMONARY SARCOIDOSIS
     Dosage: 200 MG, OD
     Route: 048
     Dates: start: 201409
  6. GABAPENTIN. [Concomitant]
     Active Substance: GABAPENTIN
     Indication: NEUROPATHY PERIPHERAL
     Dosage: 1.5 DF, TID
     Route: 048
     Dates: start: 201603
  7. REMICADE [Concomitant]
     Active Substance: INFLIXIMAB
     Dosage: 500 MG IV INFUSION EVERY 8 WEEKS
  8. AMBIEN CR [Concomitant]
     Active Substance: ZOLPIDEM TARTRATE
     Indication: PRODUCT USED FOR UNKNOWN INDICATION
     Dosage: UNK UNK, UNKNOWN
     Route: 065
  9. LYRICA [Concomitant]
     Active Substance: PREGABALIN
     Indication: PULMONARY SARCOIDOSIS
  10. REMICADE [Concomitant]
     Active Substance: INFLIXIMAB
     Indication: PULMONARY SARCOIDOSIS
     Dosage: 500 MG IV INFUSION OVER 4 HOURS EVERY 6 WEEKS
     Route: 042
     Dates: start: 201602
  11. PREDNISONE. [Suspect]
     Active Substance: PREDNISONE
     Dosage: LOWER DOSE UNKNOWN
     Route: 065
  12. ELIQUIS [Concomitant]
     Active Substance: APIXABAN
     Indication: CARDIAC FLUTTER
     Dosage: 5 MG, TWICE A DAY
     Route: 048
     Dates: start: 201704
  13. ZOLPIDEM [Concomitant]
     Active Substance: ZOLPIDEM TARTRATE
     Indication: SLEEP DISORDER
     Dosage: 10 MG TABLET ONCE A NIGHT
     Route: 048
     Dates: start: 201604
  14. PREDNISONE. [Suspect]
     Active Substance: PREDNISONE
     Indication: PULMONARY SARCOIDOSIS
     Dosage: 5 MG, UNKNOWN
     Route: 048
  15. PREDNISONE. [Suspect]
     Active Substance: PREDNISONE
     Dosage: 10MG (3 DF), DAILY FOR 2 WEEKS
     Route: 065
  16. PREDNISONE. [Suspect]
     Active Substance: PREDNISONE
     Dosage: 1 DF, DAILY
     Route: 048
     Dates: start: 201409
  17. VORICONAZOLE. [Concomitant]
     Active Substance: VORICONAZOLE
     Indication: ASPERGILLUS INFECTION
     Dosage: 200 MG, BID
     Route: 048
     Dates: start: 201703
  18. ELIQUIS [Concomitant]
     Active Substance: APIXABAN
     Indication: ATRIAL FIBRILLATION
  19. IMURAN [Concomitant]
     Active Substance: AZATHIOPRINE
     Indication: SARCOIDOSIS
     Dosage: UNK
     Dates: start: 201409
  20. ASPIRIN                            /00002701/ [Concomitant]
     Active Substance: ASPIRIN
     Indication: PRODUCT USED FOR UNKNOWN INDICATION
     Dosage: UNK UNK, UNKNOWN
     Route: 065
  21. PREDNISONE. [Suspect]
     Active Substance: PREDNISONE
     Dosage: 10MG (4 DF), DAILY
     Route: 065
     Dates: start: 201702
  22. PREDNISONE. [Suspect]
     Active Substance: PREDNISONE
     Dosage: 10 MG (2 DF), DAILY
     Route: 065
  23. LYRICA [Concomitant]
     Active Substance: PREGABALIN
     Indication: SMALL FIBRE NEUROPATHY
     Dosage: 3 DF, DAILY
     Route: 048
     Dates: start: 201608
  24. AZATHIOPRINE. [Concomitant]
     Active Substance: AZATHIOPRINE
     Indication: PULMONARY SARCOIDOSIS
     Dosage: 50 MG, OD
     Route: 048
     Dates: start: 201511
  25. LOSARTAN. [Concomitant]
     Active Substance: LOSARTAN
     Indication: BLOOD PRESSURE ABNORMAL
     Dosage: 1 DF, OD
     Route: 048
     Dates: start: 201502

REACTIONS (5)
  - Osteopenia [Not Recovered/Not Resolved]
  - Eye disorder [Unknown]
  - Tooth loss [Unknown]
  - Cataract [Unknown]
  - Adverse event [Unknown]
